FAERS Safety Report 11020987 (Version 1)
Quarter: 2015Q2

REPORT INFORMATION
  Report Type: Spontaneous
  Country: US (occurrence: US)
  Receive Date: 20150413
  Receipt Date: 20150413
  Transmission Date: 20150821
  Serious: Yes (Death, Other)
  Sender: FDA-Public Use
  Company Number: US-PURDUE PHARMA-USA-2015-0122106

PATIENT
  Age: 72 Year
  Sex: Female

DRUGS (2)
  1. BUTRANS [Suspect]
     Active Substance: BUPRENORPHINE
     Indication: PAIN
  2. BUTRANS [Suspect]
     Active Substance: BUPRENORPHINE
     Indication: BACK DISORDER
     Dosage: 10 MCG/HR, WEEKLY
     Route: 062
     Dates: start: 20150316, end: 20150316

REACTIONS (6)
  - Cardiac failure [Fatal]
  - Discomfort [Unknown]
  - Nausea [Unknown]
  - Unresponsive to stimuli [Unknown]
  - Abdominal pain upper [Unknown]
  - Aortic aneurysm rupture [Unknown]

NARRATIVE: CASE EVENT DATE: 20150316
